FAERS Safety Report 9086695 (Version 3)
Quarter: 2013Q4

REPORT INFORMATION
  Report Type: Report from Study
  Country: JP (occurrence: JP)
  Receive Date: 20130131
  Receipt Date: 20131106
  Transmission Date: 20140711
  Serious: Yes (Other)
  Sender: FDA-Public Use
  Company Number: JP-VERTEX PHARMACEUTICALS INC.-2013-001414

PATIENT
  Age: 61 Year
  Sex: Female

DRUGS (9)
  1. VX-950 (TELAPREVIR) [Suspect]
     Indication: CHRONIC HEPATITIS C
     Dosage: 2250 MG, QD
     Route: 048
     Dates: start: 20120404, end: 20120523
  2. REBETOL [Suspect]
     Indication: CHRONIC HEPATITIS C
     Dosage: 600 MG, QD
     Route: 048
     Dates: start: 20120404, end: 20120508
  3. REBETOL [Suspect]
     Dosage: 400 MG, QD
     Route: 048
     Dates: start: 20120509, end: 20120523
  4. REBETOL [Suspect]
     Dosage: 400 MG, QD
     Route: 048
     Dates: start: 20120606
  5. PEGINTERFERON ALFA-2B [Suspect]
     Indication: CHRONIC HEPATITIS C
     Dosage: 1.4 ?G/KG, QW
     Route: 058
     Dates: start: 20120404, end: 20120516
  6. PEGINTERFERON ALFA-2B [Suspect]
     Dosage: 1.40 ?G/KG, QW
     Route: 058
     Dates: start: 20120606, end: 20120606
  7. PEGINTERFERON ALFA-2B [Suspect]
     Dosage: 0.70 ?G/KG, QW
     Route: 058
     Dates: start: 20120613
  8. SIGMART [Concomitant]
     Dosage: 15 MG, QD
     Route: 048
  9. CONIEL [Concomitant]
     Dosage: 8 MG, QD
     Route: 048

REACTIONS (2)
  - Haemoglobin decreased [Recovered/Resolved]
  - White blood cell count decreased [Recovered/Resolved]
